FAERS Safety Report 17552263 (Version 2)
Quarter: 2020Q2

REPORT INFORMATION
  Report Type: Spontaneous
  Country: US (occurrence: US)
  Receive Date: 20200317
  Receipt Date: 20200420
  Transmission Date: 20200713
  Serious: Yes (Other)
  Sender: FDA-Public Use
  Company Number: US-BAYER-2020-042234

PATIENT
  Age: 51 Year
  Sex: Female

DRUGS (2)
  1. MIRENA [Suspect]
     Active Substance: LEVONORGESTREL
     Indication: MENORRHAGIA
     Dosage: 20?G PER DAY, CONTIONOUSLY
     Route: 015
     Dates: start: 20191020, end: 20200309
  2. MIRENA [Suspect]
     Active Substance: LEVONORGESTREL
     Indication: CONTRACEPTION

REACTIONS (4)
  - Medical device monitoring error [None]
  - Contraindicated device used [None]
  - Menstruation irregular [None]
  - Device dislocation [Recovered/Resolved]

NARRATIVE: CASE EVENT DATE: 20200309
